FAERS Safety Report 17554291 (Version 1)
Quarter: 2020Q1

REPORT INFORMATION
  Report Type: Spontaneous
  Country: DE (occurrence: DE)
  Receive Date: 20200318
  Receipt Date: 20200318
  Transmission Date: 20200409
  Serious: Yes (Hospitalization)
  Sender: FDA-Public Use
  Company Number: DE-GLAXOSMITHKLINE-DE2020044122

PATIENT
  Age: 6 Month
  Sex: Male
  Weight: 9.7 kg

DRUGS (1)
  1. FLUTIDE [Suspect]
     Active Substance: FLUTICASONE PROPIONATE
     Indication: BRONCHIAL HYPERREACTIVITY
     Dosage: DAILY DOSE: 250 ?G MICROGRAM(S) EVERY DAYS 2 SEPARATED DOSES
     Route: 055
     Dates: start: 20190601

REACTIONS (2)
  - Obstructive airways disorder [Recovering/Resolving]
  - Treatment noncompliance [Recovering/Resolving]

NARRATIVE: CASE EVENT DATE: 20190812
